FAERS Safety Report 18345495 (Version 1)
Quarter: 2020Q4

REPORT INFORMATION
  Report Type: Spontaneous
  Country: US (occurrence: US)
  Receive Date: 20201005
  Receipt Date: 20201005
  Transmission Date: 20210114
  Serious: Yes (Other)
  Sender: FDA-Public Use
  Company Number: US-PFIZER INC-2020380753

PATIENT
  Age: 53 Year
  Sex: Female
  Weight: 114.31 kg

DRUGS (2)
  1. PREMPRO [Suspect]
     Active Substance: ESTROGENS, CONJUGATED\MEDROXYPROGESTERONE ACETATE
     Indication: HOT FLUSH
  2. PREMPRO [Suspect]
     Active Substance: ESTROGENS, CONJUGATED\MEDROXYPROGESTERONE ACETATE
     Indication: MENOPAUSE
     Dosage: UNK, 1X/DAY (0.3 MG - 1.5 MG BY MOUTH AT NIGHT)
     Route: 048
     Dates: start: 20200920

REACTIONS (2)
  - Haemorrhage [Not Recovered/Not Resolved]
  - Vaginal haemorrhage [Unknown]

NARRATIVE: CASE EVENT DATE: 20200930
